FAERS Safety Report 10177461 (Version 2)
Quarter: 2014Q2

REPORT INFORMATION
  Report Type: Report from Study
  Country: US (occurrence: US)
  Receive Date: 20140516
  Receipt Date: 20140516
  Transmission Date: 20141212
  Serious: Yes (Hospitalization)
  Sender: FDA-Public Use
  Company Number: PHHO2011US02997

PATIENT
  Age: 33 Year
  Sex: Female
  Weight: 112 kg

DRUGS (4)
  1. SANDOSTATIN LAR [Suspect]
     Indication: ACROMEGALY
     Dosage: CORE PHASE
     Route: 030
     Dates: start: 20091215
  2. SANDOSTATIN LAR [Suspect]
     Dosage: EXTENSION BLINDED PHASE
     Route: 030
     Dates: start: 20101118
  3. URSODIOL [Concomitant]
  4. LANSOPRAZOLE [Concomitant]

REACTIONS (4)
  - Cholecystitis acute [Recovered/Resolved]
  - Abdominal pain [Recovered/Resolved]
  - Diarrhoea [Recovered/Resolved]
  - Pyrexia [Recovered/Resolved]
